FAERS Safety Report 9521455 (Version 1)
Quarter: 2013Q3

REPORT INFORMATION
  Report Type: Spontaneous
  Country: DE (occurrence: DE)
  Receive Date: 20130913
  Receipt Date: 20130913
  Transmission Date: 20140515
  Serious: Yes (Hospitalization, Other)
  Sender: FDA-Public Use
  Company Number: DE-PFIZER INC-2013262008

PATIENT
  Sex: Male

DRUGS (1)
  1. ARTHOTEC [Suspect]
     Indication: BACK PAIN

REACTIONS (1)
  - Crohn^s disease [Unknown]
